FAERS Safety Report 10406602 (Version 2)
Quarter: 2014Q3

REPORT INFORMATION
  Report Type: Spontaneous
  Country: JP (occurrence: None)
  Receive Date: 20140821
  Receipt Date: 20140904
  Transmission Date: 20150326
  Serious: Yes (Other)
  Sender: FDA-Public Use
  Company Number: JP-20140305

PATIENT
  Age: 7 Decade
  Sex: Female

DRUGS (3)
  1. GELPART [Concomitant]
     Active Substance: GELATIN
  2. CISPLATIN. [Concomitant]
     Active Substance: CISPLATIN
  3. LIPIODOL ULTRA-FLUIDE [Suspect]
     Active Substance: ETHIODIZED OIL
     Indication: THERAPEUTIC EMBOLISATION
     Route: 013

REACTIONS (7)
  - Disseminated intravascular coagulation [None]
  - Off label use [None]
  - Tumour necrosis [None]
  - Multi-organ failure [None]
  - Tumour lysis syndrome [None]
  - General physical health deterioration [None]
  - Metastases to bone [None]
